FAERS Safety Report 8887795 (Version 1)
Quarter: 2012Q4

REPORT INFORMATION
  Report Type: 
  Country: CA (occurrence: CA)
  Receive Date: 20121106
  Receipt Date: 20121106
  Transmission Date: 20130627
  Serious: Yes (Hospitalization)
  Sender: FDA-Public Use
  Company Number: CA-ELI_LILLY_AND_COMPANY-CA201210008628

PATIENT
  Age: 67 Year
  Sex: Female

DRUGS (1)
  1. HUMULIN NPH [Suspect]
     Dosage: UNK, unknown

REACTIONS (1)
  - Surgery [Unknown]
